FAERS Safety Report 9463195 (Version 1)
Quarter: 2013Q3

REPORT INFORMATION
  Report Type: Spontaneous
  Country: US (occurrence: US)
  Receive Date: 20130818
  Receipt Date: 20130818
  Transmission Date: 20140515
  Serious: Yes (Hospitalization)
  Sender: FDA-Public Use
  Company Number: PHHY2013US086146

PATIENT
  Age: 54 Year
  Sex: Male

DRUGS (5)
  1. DOXORUBICIN [Suspect]
     Indication: DIFFUSE LARGE B-CELL LYMPHOMA
  2. PREDNISOLONE [Suspect]
     Indication: DIFFUSE LARGE B-CELL LYMPHOMA
  3. RITUXIMAB [Suspect]
     Indication: DIFFUSE LARGE B-CELL LYMPHOMA
  4. CYCLOPHOSPHAMIDE [Suspect]
     Indication: DIFFUSE LARGE B-CELL LYMPHOMA
  5. ONCOVIN [Suspect]
     Indication: DIFFUSE LARGE B-CELL LYMPHOMA

REACTIONS (12)
  - Febrile neutropenia [Recovered/Resolved]
  - Colitis [Recovered/Resolved]
  - Clostridium difficile colitis [Recovered/Resolved]
  - Stomatitis [Recovered/Resolved]
  - Pyrexia [Recovered/Resolved]
  - Vomiting [Recovered/Resolved]
  - Diarrhoea [Recovered/Resolved]
  - Abdominal pain [Recovered/Resolved]
  - Abdominal rigidity [Recovered/Resolved]
  - Abdominal distension [Recovered/Resolved]
  - Mucosal inflammation [Recovered/Resolved]
  - Gastric mucosal hypertrophy [Recovered/Resolved]
